FAERS Safety Report 7926976-3 (Version None)
Quarter: 2011Q4

REPORT INFORMATION
  Report Type: 
  Country: None (occurrence: None)
  Receive Date: 20111118
  Receipt Date: 20111112
  Transmission Date: 20120403
  Serious: Yes (Other)
  Sender: FDA-Public Use
  Company Number: KR-JNJFOC-20111105788

PATIENT
  Age: 6 Decade
  Sex: Female

DRUGS (2)
  1. DURAGESIC-100 [Suspect]
     Indication: PAIN
     Route: 062
     Dates: start: 20111112
  2. DOMPERIDONE MALEATE [Concomitant]
     Indication: PROPHYLAXIS
     Route: 048
     Dates: start: 20111112

REACTIONS (3)
  - BLOOD PRESSURE DECREASED [None]
  - INAPPROPRIATE SCHEDULE OF DRUG ADMINISTRATION [None]
  - BLOOD PRESSURE INCREASED [None]
